FAERS Safety Report 5236626-5 (Version None)
Quarter: 2007Q1

REPORT INFORMATION
  Report Type: 
  Country: None (occurrence: None)
  Receive Date: 20070208
  Receipt Date: 20070129
  Transmission Date: 20070707
  Serious: Yes (Other)
  Sender: FDA-Public Use
  Company Number: 235756

PATIENT
  Age: 67 Year
  Sex: Female
  Weight: 69.5 kg

DRUGS (3)
  1. AVASTIN [Suspect]
     Indication: COLORECTAL CANCER
     Dosage: 5 MG/KG
  2. OXALIPLATIN [Suspect]
     Indication: COLORECTAL CANCER
     Dosage: 85 MG/M2
  3. XELODA [Suspect]
     Indication: COLORECTAL CANCER
     Dosage: 5000 MG

REACTIONS (3)
  - BLOOD PRESSURE SYSTOLIC INCREASED [None]
  - CHEST PAIN [None]
  - CREATINE PHOSPHOKINASE DECREASED [None]
